FAERS Safety Report 25561792 (Version 3)
Quarter: 2025Q3

REPORT INFORMATION
  Report Type: Spontaneous
  Country: US (occurrence: US)
  Receive Date: 20250716
  Receipt Date: 20250716
  Transmission Date: 20251021
  Serious: Yes (Other)
  Sender: NOVO NORDISK
  Company Number: US-NOVOPROD-1268508

PATIENT
  Age: 40 Year
  Sex: Female
  Weight: 110.2 kg

DRUGS (6)
  1. OZEMPIC [Suspect]
     Active Substance: SEMAGLUTIDE
     Indication: Type 2 diabetes mellitus
     Dosage: 0.5 MG, QW
     Dates: start: 20220228, end: 20220423
  2. OZEMPIC [Suspect]
     Active Substance: SEMAGLUTIDE
     Indication: Type 2 diabetes mellitus
     Dosage: 1 MG, QW
     Dates: start: 20220423, end: 20220715
  3. OZEMPIC [Suspect]
     Active Substance: SEMAGLUTIDE
     Indication: Type 2 diabetes mellitus
     Dosage: 2 MG, QW
     Dates: start: 20220715, end: 20220822
  4. METFORMIN [Concomitant]
     Active Substance: METFORMIN HYDROCHLORIDE
     Indication: Type 2 diabetes mellitus
     Dates: start: 20180101, end: 20250106
  5. INSULIN NOS [Concomitant]
     Active Substance: INSULIN NOS
     Indication: Type 2 diabetes mellitus
     Dates: start: 20180101, end: 20250106
  6. LISINOPRIL [Concomitant]
     Active Substance: LISINOPRIL
     Indication: Hypertension
     Dates: start: 20180101, end: 20250106

REACTIONS (3)
  - Impaired gastric emptying [Not Recovered/Not Resolved]
  - Dyspepsia [Not Recovered/Not Resolved]
  - Off label use [Unknown]

NARRATIVE: CASE EVENT DATE: 20220228
